FAERS Safety Report 12456332 (Version 1)
Quarter: 2016Q2

REPORT INFORMATION
  Report Type: Spontaneous
  Country: US (occurrence: US)
  Receive Date: 20160610
  Receipt Date: 20160610
  Transmission Date: 20160815
  Serious: Yes (Hospitalization)
  Sender: FDA-Public Use
  Company Number: US-FERRINGPH-2016FE02545

PATIENT

DRUGS (1)
  1. FIRMAGON [Suspect]
     Active Substance: DEGARELIX ACETATE
     Indication: PROSTATE CANCER
     Dosage: 240 MG, ONCE/SINGLE
     Route: 058
     Dates: start: 20160531, end: 20160531

REACTIONS (5)
  - Vomiting [Unknown]
  - Inflammation [Unknown]
  - Dizziness [Unknown]
  - Pyrexia [Unknown]
  - Chills [Unknown]

NARRATIVE: CASE EVENT DATE: 2016
